FAERS Safety Report 6606546-X (Version None)
Quarter: 2010Q1

REPORT INFORMATION
  Report Type: 
  Country: None (occurrence: None)
  Receive Date: 20100226
  Receipt Date: 20100215
  Transmission Date: 20100710
  Serious: Yes (Hospitalization)
  Sender: FDA-Public Use
  Company Number: JP-PFIZER INC-2010020755

PATIENT
  Age: 88 Year
  Sex: Female

DRUGS (1)
  1. MEDROL [Suspect]
     Indication: RHEUMATOID ARTHRITIS
     Dosage: 4 MG, 2X/DAY
     Route: 048
     Dates: start: 20071007, end: 20080103

REACTIONS (2)
  - ARTHRALGIA [None]
  - PYREXIA [None]
